FAERS Safety Report 15994965 (Version 2)
Quarter: 2019Q1

REPORT INFORMATION
  Report Type: Spontaneous
  Country: IT (occurrence: IT)
  Receive Date: 20190222
  Receipt Date: 20190301
  Transmission Date: 20190418
  Serious: Yes (Death)
  Sender: FDA-Public Use
  Company Number: IT-DSJP-DSE-2019-106392

PATIENT

DRUGS (1)
  1. EDOXABAN [Suspect]
     Active Substance: EDOXABAN TOSYLATE
     Indication: ATRIAL FIBRILLATION
     Dosage: 1 DF, QD
     Route: 048

REACTIONS (2)
  - Brain stem haemorrhage [Fatal]
  - Coma [Fatal]

NARRATIVE: CASE EVENT DATE: 20190207
